FAERS Safety Report 7434091-0 (Version None)
Quarter: 2011Q2

REPORT INFORMATION
  Report Type: 
  Country: None (occurrence: None)
  Receive Date: 20110425
  Receipt Date: 20100317
  Transmission Date: 20111010
  Serious: No
  Sender: FDA-Public Use
  Company Number: US-MYLANLABS-2010S1004719

PATIENT
  Age: 69 Year
  Sex: Male
  Weight: 67.13 kg

DRUGS (5)
  1. METOPROLOL [Concomitant]
     Indication: BLOOD PRESSURE
     Dates: start: 20060801
  2. ASPIRIN [Concomitant]
     Indication: ANTICOAGULANT THERAPY
     Dates: start: 20060801
  3. LORAZEPAM [Suspect]
     Indication: ANXIETY
     Route: 048
     Dates: start: 20060101
  4. AMLODIPINE [Concomitant]
     Indication: BLOOD PRESSURE
     Dates: start: 20060801
  5. VITAMIN D [Suspect]
     Route: 048
     Dates: start: 20100301

REACTIONS (4)
  - BLOOD PRESSURE INCREASED [None]
  - HYPERHIDROSIS [None]
  - ANXIETY [None]
  - DRUG EFFECT DECREASED [None]
